FAERS Safety Report 6168453-9 (Version None)
Quarter: 2009Q2

REPORT INFORMATION
  Report Type: 
  Country: None (occurrence: None)
  Receive Date: 20090427
  Receipt Date: 20090417
  Transmission Date: 20091009
  Serious: Yes (Other)
  Sender: FDA-Public Use
  Company Number: A0764908A

PATIENT
  Age: 59 Year
  Sex: Male

DRUGS (4)
  1. AVANDIA [Suspect]
     Dosage: 4MG PER DAY
     Route: 048
     Dates: start: 20030101, end: 20070101
  2. METFORMIN HCL [Concomitant]
     Dates: start: 20040101
  3. GLUCOTROL XL [Concomitant]
     Dates: start: 19950101
  4. GLYNASE PRESTAB [Concomitant]
     Dates: start: 20000101

REACTIONS (3)
  - CORONARY ARTERY DISEASE [None]
  - HEART INJURY [None]
  - ISCHAEMIA [None]
